FAERS Safety Report 6254684-6 (Version None)
Quarter: 2009Q3

REPORT INFORMATION
  Report Type: 
  Country: None (occurrence: None)
  Receive Date: 20090702
  Receipt Date: 20090629
  Transmission Date: 20100115
  Serious: Yes (Other)
  Sender: FDA-Public Use
  Company Number: JP-AVENTIS-200911405JP

PATIENT
  Age: 43 Year
  Sex: Male

DRUGS (4)
  1. LANTUS [Suspect]
     Dosage: DOSE: 9-0-0-0 UNITS
     Route: 058
     Dates: start: 20081119
  2. OLMETEC [Suspect]
     Indication: HYPERTENSION
     Route: 048
  3. NOVORAPID [Concomitant]
     Dosage: DOSE: 5-7-5-0 UNITS
     Route: 058
  4. ASTOMIN                            /00426502/ [Concomitant]
     Route: 048
     Dates: end: 20090216

REACTIONS (1)
  - BLOOD CREATININE INCREASED [None]
